FAERS Safety Report 11191571 (Version 1)
Quarter: 2015Q2

REPORT INFORMATION
  Report Type: Spontaneous
  Country: US (occurrence: None)
  Receive Date: 20150612
  Receipt Date: 20150612
  Transmission Date: 20150821
  Serious: Yes (Life-Threatening, Hospitalization, Disabling, Other)
  Sender: FDA-Public Use
  Company Number: None

PATIENT
  Age: 48 Year
  Sex: Female
  Weight: 58.97 kg

DRUGS (18)
  1. INSULIN VIA PUMP [Concomitant]
  2. ZOLOFT [Concomitant]
     Active Substance: SERTRALINE HYDROCHLORIDE
  3. BACTRIM [Concomitant]
     Active Substance: SULFAMETHOXAZOLE\TRIMETHOPRIM
  4. NEBULIZER [Concomitant]
     Active Substance: UNSPECIFIED INGREDIENT
  5. CANE [Concomitant]
  6. VITAMINS B12 [Concomitant]
  7. STATINS [Concomitant]
     Active Substance: UNSPECIFIED INGREDIENT
  8. XANAX [Concomitant]
     Active Substance: ALPRAZOLAM
  9. PEPSID [Concomitant]
  10. ADDERALL [Concomitant]
     Active Substance: AMPHETAMINE ASPARTATE\AMPHETAMINE SULFATE\DEXTROAMPHETAMINE SACCHARATE\DEXTROAMPHETAMINE SULFATE
  11. ADVAIR HFA [Concomitant]
     Active Substance: FLUTICASONE PROPIONATE\SALMETEROL XINAFOATE
  12. WALKER [Concomitant]
  13. LOSARTAN [Concomitant]
     Active Substance: LOSARTAN
  14. DAILY CENTRUM VIT [Concomitant]
  15. LOMOTIL [Concomitant]
     Active Substance: ATROPINE SULFATE\DIPHENOXYLATE HYDROCHLORIDE
  16. TOBRAMYCIN 350MG IV/ ONCE PER DAY [Suspect]
     Active Substance: TOBRAMYCIN
     Indication: CYSTIC FIBROSIS
     Route: 042
     Dates: start: 20061031, end: 20061208
  17. ALBUTERAL [Concomitant]
     Active Substance: ALBUTEROL
  18. GLUCOSE MONITOR [Concomitant]

REACTIONS (23)
  - Nausea [None]
  - Diarrhoea [None]
  - Depression [None]
  - Influenza [None]
  - Malaise [None]
  - Amnesia [None]
  - Dizziness [None]
  - Antibiotic level above therapeutic [None]
  - Disorientation [None]
  - Poisoning [None]
  - Laboratory test abnormal [None]
  - Renal failure [None]
  - Fall [None]
  - Loss of consciousness [None]
  - Confusional state [None]
  - Rash erythematous [None]
  - Multiple injuries [None]
  - Anxiety [None]
  - Quality of life decreased [None]
  - Toxicity to various agents [None]
  - Gait disturbance [None]
  - Cholecystectomy [None]
  - Oscillopsia [None]

NARRATIVE: CASE EVENT DATE: 20061211
